FAERS Safety Report 8163196-4 (Version None)
Quarter: 2012Q1

REPORT INFORMATION
  Report Type: 
  Country: None (occurrence: None)
  Receive Date: 20120224
  Receipt Date: 20110222
  Transmission Date: 20120608
  Serious: No
  Sender: FDA-Public Use
  Company Number: US-PFIZER INC-K201100197

PATIENT
  Sex: Female
  Weight: 52.154 kg

DRUGS (4)
  1. LAMICTAL [Concomitant]
     Dosage: UNK
  2. KLONOPIN [Concomitant]
     Dosage: UNK
  3. SEROQUEL [Concomitant]
     Dosage: UNK
  4. FLECTOR [Suspect]
     Indication: BACK PAIN
     Dosage: 1 PATCH, SINGLE
     Route: 061
     Dates: start: 20110127, end: 20110127

REACTIONS (3)
  - ASTHMA [None]
  - PARAESTHESIA ORAL [None]
  - RASH [None]
